FAERS Safety Report 20264148 (Version 1)
Quarter: 2021Q4

REPORT INFORMATION
  Report Type: Spontaneous
  Country: US (occurrence: None)
  Receive Date: 20211230
  Receipt Date: 20211230
  Transmission Date: 20220304
  Serious: No
  Sender: FDA-Public Use
  Company Number: None

PATIENT
  Age: 15 Year
  Sex: Female
  Weight: 41.9 kg

DRUGS (1)
  1. BAMLANIVIMAB\ETESEVIMAB [Suspect]
     Active Substance: BAMLANIVIMAB\ETESEVIMAB
     Indication: SARS-CoV-2 test positive

REACTIONS (5)
  - Cough [None]
  - Erythema [None]
  - Blood pressure increased [None]
  - Urticaria [None]
  - Blood glucose increased [None]

NARRATIVE: CASE EVENT DATE: 20211228
